FAERS Safety Report 19930644 (Version 1)
Quarter: 2021Q4

REPORT INFORMATION
  Report Type: Spontaneous
  Country: US (occurrence: US)
  Receive Date: 20211007
  Receipt Date: 20211007
  Transmission Date: 20220303
  Serious: Yes (Other)
  Sender: FDA-Public Use
  Company Number: US-GLAXOSMITHKLINE-USCH2021GSK069893

PATIENT
  Age: 14 Year
  Sex: Female

DRUGS (3)
  1. IBUPROFEN [Suspect]
     Active Substance: IBUPROFEN
     Indication: Product used for unknown indication
     Dosage: UNK
     Route: 048
  2. HYDROXYCHLOROQUINE [Suspect]
     Active Substance: HYDROXYCHLOROQUINE
     Indication: Product used for unknown indication
     Dosage: 60 TABLETS OF 200 MG
     Route: 048
  3. NAPROXEN [Suspect]
     Active Substance: NAPROXEN
     Indication: Product used for unknown indication
     Dosage: SEVERAL
     Route: 048

REACTIONS (8)
  - Pulmonary oedema [Unknown]
  - Renal failure [Unknown]
  - Pupil fixed [Unknown]
  - Unresponsive to stimuli [Unknown]
  - Hypotension [Unknown]
  - Metabolic acidosis [Unknown]
  - Intentional overdose [Unknown]
  - Cardiac arrest [Unknown]
